FAERS Safety Report 9064536 (Version 2)
Quarter: 2013Q2

REPORT INFORMATION
  Report Type: Report from Study
  Country: JP (occurrence: JP)
  Receive Date: 20130128
  Receipt Date: 20130417
  Transmission Date: 20140414
  Serious: Yes (Hospitalization, Other)
  Sender: FDA-Public Use
  Company Number: PHHY2013JP007160

PATIENT
  Age: 64 Year
  Sex: Female

DRUGS (7)
  1. AFINITOR [Suspect]
     Indication: METASTATIC RENAL CELL CARCINOMA
     Dosage: 10 MG, DAILY
     Route: 048
     Dates: start: 20111214, end: 20111228
  2. AFINITOR [Suspect]
     Dosage: 5 MG, DAILY
     Route: 048
     Dates: start: 20111229, end: 20120208
  3. MYSLEE [Concomitant]
     Dosage: 5 MG,
     Route: 048
     Dates: start: 20111202, end: 20111214
  4. RESLIN [Concomitant]
     Dosage: 50 MG,
     Route: 048
     Dates: start: 20111214
  5. LENDORMIN [Concomitant]
     Dosage: 0.25 MG,
     Route: 048
     Dates: start: 20111214
  6. HACHIAZULE [Concomitant]
     Indication: PROPHYLAXIS
     Dosage: 6 IU,
     Dates: start: 20111206
  7. DEXALTIN [Concomitant]
     Dates: start: 20111216

REACTIONS (8)
  - Metastatic renal cell carcinoma [Not Recovered/Not Resolved]
  - Malignant neoplasm progression [Not Recovered/Not Resolved]
  - Interstitial lung disease [Recovered/Resolved]
  - Pyrexia [Recovered/Resolved]
  - Cough [Recovered/Resolved]
  - Hyperglycaemia [Recovered/Resolved]
  - C-reactive protein increased [Unknown]
  - Platelet count decreased [Unknown]
